FAERS Safety Report 16388369 (Version 1)
Quarter: 2019Q2

REPORT INFORMATION
  Report Type: Spontaneous
  Country: US (occurrence: US)
  Receive Date: 20190604
  Receipt Date: 20190604
  Transmission Date: 20190711
  Serious: No
  Sender: FDA-Public Use
  Company Number: US-PFIZER INC-2019236666

PATIENT
  Age: 72 Year
  Sex: Female

DRUGS (7)
  1. SYNTHROID [Suspect]
     Active Substance: LEVOTHYROXINE SODIUM
     Dosage: 50 MG, 1X/DAY
  2. LYRICA [Suspect]
     Active Substance: PREGABALIN
     Indication: DIABETES MELLITUS
     Dosage: 75 MG, 2X/DAY
     Route: 048
  3. IODINE. [Suspect]
     Active Substance: IODINE
     Dosage: UNK
  4. MAXZIDE [Suspect]
     Active Substance: HYDROCHLOROTHIAZIDE\TRIAMTERENE
     Dosage: UNK UNK, 1X/DAY, (75 MG TRIAMTERENE/50 MG HYDROCHLOROTHIAZIDE)
  5. AMBIEN [Suspect]
     Active Substance: ZOLPIDEM TARTRATE
     Dosage: 10 MG, 1X/DAY
  6. TRAMADOL. [Suspect]
     Active Substance: TRAMADOL
     Dosage: 150 MG, UNK
  7. ATORVASTATIN CALCIUM. [Suspect]
     Active Substance: ATORVASTATIN CALCIUM
     Dosage: 20 MG, 1X/DAY

REACTIONS (1)
  - Drug hypersensitivity [Unknown]
